FAERS Safety Report 23389192 (Version 1)
Quarter: 2024Q1

REPORT INFORMATION
  Report Type: Spontaneous
  Country: US (occurrence: US)
  Receive Date: 20240110
  Receipt Date: 20240110
  Transmission Date: 20240410
  Serious: Yes (Other)
  Sender: FDA-Public Use
  Company Number: US-FreseniusKabi-FK202400331

PATIENT
  Age: 4 Year
  Sex: Male

DRUGS (3)
  1. SMOFLIPID [Suspect]
     Active Substance: FISH OIL\MEDIUM-CHAIN TRIGLYCERIDES\OLIVE OIL\SOYBEAN OIL
     Indication: Product used for unknown indication
     Dosage: 1.75 GM/KG/D
  2. OMEGAVEN [Suspect]
     Active Substance: FISH OIL
     Indication: Product used for unknown indication
     Dosage: 1.75 GM/KG/D
  3. OMEGAVEN [Suspect]
     Active Substance: FISH OIL
     Dosage: 1 GM/KG/D

REACTIONS (2)
  - Parenteral nutrition associated liver disease [Unknown]
  - Off label use [Unknown]
